FAERS Safety Report 12108584 (Version 1)
Quarter: 2016Q1

REPORT INFORMATION
  Report Type: Spontaneous
  Country: US (occurrence: None)
  Receive Date: 20160222
  Receipt Date: 20160222
  Transmission Date: 20160526
  Serious: Yes (Death, Hospitalization)
  Sender: FDA-Public Use
  Company Number: None

PATIENT
  Age: 17 Year
  Sex: Male
  Weight: 68.9 kg

DRUGS (6)
  1. ONCASPAR [Suspect]
     Active Substance: PEGASPARGASE
     Dates: end: 20151225
  2. ETOPOSIDE (VP-16) [Suspect]
     Active Substance: ETOPOSIDE
     Dates: end: 20160103
  3. CYTARABINE. [Suspect]
     Active Substance: CYTARABINE
     Dates: end: 20160105
  4. HYDROCORTISONE. [Suspect]
     Active Substance: HYDROCORTISONE
     Dates: end: 20160105
  5. METHOTREXATE [Suspect]
     Active Substance: METHOTREXATE
     Dates: end: 20151226
  6. CYCLOPHOSPHAMIDE. [Suspect]
     Active Substance: CYCLOPHOSPHAMIDE
     Dates: end: 20160103

REACTIONS (12)
  - Klebsiella infection [None]
  - Bradycardia [None]
  - Septic shock [None]
  - Hyperammonaemia [None]
  - Blood culture positive [None]
  - Lactic acidosis [None]
  - Candida test positive [None]
  - Pancytopenia [None]
  - Respiratory distress [None]
  - Coagulopathy [None]
  - Hepatic failure [None]
  - Hypernatraemia [None]

NARRATIVE: CASE EVENT DATE: 20160114
